FAERS Safety Report 5147608-6 (Version None)
Quarter: 2006Q4

REPORT INFORMATION
  Report Type: 
  Country: None (occurrence: None)
  Receive Date: 20061110
  Receipt Date: 20061030
  Transmission Date: 20070319
  Serious: Yes (Other)
  Sender: FDA-Public Use
  Company Number: US-JNJFOC-20060801794

PATIENT
  Sex: Female
  Weight: 81.65 kg

DRUGS (6)
  1. REMICADE [Suspect]
     Indication: CROHN'S DISEASE
     Route: 042
  2. PREDNISONE TAB [Concomitant]
  3. XANAX [Concomitant]
  4. ASACOL [Concomitant]
  5. EFFEXOR [Concomitant]
  6. SEROQUEL [Concomitant]

REACTIONS (3)
  - CONVULSION [None]
  - DEMYELINATION [None]
  - LOSS OF CONSCIOUSNESS [None]
